FAERS Safety Report 7225596-6 (Version None)
Quarter: 2011Q1

REPORT INFORMATION
  Report Type: 
  Country: None (occurrence: None)
  Receive Date: 20110113
  Receipt Date: 20110103
  Transmission Date: 20110831
  Serious: Yes (Other)
  Sender: FDA-Public Use
  Company Number: US-SANOFI-AVENTIS-2011SA000414

PATIENT
  Age: 72 Year
  Sex: Female

DRUGS (13)
  1. DIGOXIN [Concomitant]
  2. SOTALOL [Concomitant]
     Indication: ATRIAL FIBRILLATION
     Dosage: 1/2 A PILL DAILY
  3. PLAVIX [Suspect]
     Indication: STENT PLACEMENT
     Route: 048
     Dates: start: 20050101, end: 20060101
  4. WARFARIN SODIUM [Concomitant]
     Dates: start: 20100101
  5. ISOSORBIDE DINITRATE [Concomitant]
     Dosage: 1/2 TAB DAILY
  6. SIMVASTATIN [Concomitant]
  7. LANTUS [Concomitant]
  8. METFORMIN HCL [Concomitant]
  9. PLAVIX [Suspect]
     Route: 048
     Dates: start: 20060101
  10. LISINOPRIL [Concomitant]
  11. GEMFIBROZIL [Concomitant]
  12. HYDROCHLOROTHIAZIDE [Concomitant]
  13. WARFARIN SODIUM [Concomitant]
     Dates: end: 20100101

REACTIONS (5)
  - MEMORY IMPAIRMENT [None]
  - ATRIAL FIBRILLATION [None]
  - CONDITION AGGRAVATED [None]
  - BLOOD PRESSURE FLUCTUATION [None]
  - PERIPHERAL ARTERIAL OCCLUSIVE DISEASE [None]
